FAERS Safety Report 18343904 (Version 1)
Quarter: 2020Q4

REPORT INFORMATION
  Report Type: Spontaneous
  Country: PT (occurrence: PT)
  Receive Date: 20201005
  Receipt Date: 20201005
  Transmission Date: 20210114
  Serious: Yes (Death, Hospitalization)
  Sender: FDA-Public Use
  Company Number: PT-PFIZER INC-2020364454

PATIENT
  Age: 86 Year
  Sex: Male

DRUGS (1)
  1. DOXYCYCLINE HYCLATE. [Suspect]
     Active Substance: DOXYCYCLINE HYCLATE
     Indication: BOUTONNEUSE FEVER
     Dosage: UNK

REACTIONS (4)
  - Drug ineffective [Fatal]
  - Septic shock [Fatal]
  - Renal failure [Fatal]
  - Ischaemia [Fatal]
